FAERS Safety Report 18933612 (Version 1)
Quarter: 2021Q1

REPORT INFORMATION
  Report Type: Spontaneous
  Country: US (occurrence: US)
  Receive Date: 20210223
  Receipt Date: 20210223
  Transmission Date: 20210420
  Serious: Yes (Other)
  Sender: FDA-Public Use
  Company Number: None

PATIENT
  Age: 49 Year
  Sex: Female

DRUGS (1)
  1. BOTULAX [Suspect]
     Active Substance: BOTULINUM TOXIN TYPE A

REACTIONS (2)
  - VIIth nerve injury [None]
  - Swelling face [None]

NARRATIVE: CASE EVENT DATE: 20201110
